FAERS Safety Report 10029563 (Version 1)
Quarter: 2014Q1

REPORT INFORMATION
  Report Type: Spontaneous
  Country: US (occurrence: None)
  Receive Date: 20140320
  Receipt Date: 20140320
  Transmission Date: 20141002
  Serious: Yes (Hospitalization)
  Sender: FDA-Public Use
  Company Number: None

PATIENT
  Age: 68 Year
  Sex: Female
  Weight: 57.15 kg

DRUGS (1)
  1. PROLIA [Suspect]
     Indication: OSTEOARTHRITIS
     Dosage: INJECTION
     Route: 030
     Dates: start: 20130813

REACTIONS (8)
  - Dyspnoea [None]
  - Tremor [None]
  - Myalgia [None]
  - Arthralgia [None]
  - Cystitis [None]
  - Chest pain [None]
  - Myocardial infarction [None]
  - Fatigue [None]
